FAERS Safety Report 8306736-4 (Version None)
Quarter: 2012Q2

REPORT INFORMATION
  Report Type: 
  Country: None (occurrence: None)
  Receive Date: 20120424
  Receipt Date: 20120420
  Transmission Date: 20120825
  Serious: No
  Sender: FDA-Public Use
  Company Number: US-PFIZER INC-2012098552

PATIENT
  Sex: Female
  Weight: 52.154 kg

DRUGS (7)
  1. TOVIAZ [Suspect]
     Dosage: 8 MG, 1X/DAY
     Route: 048
  2. REQUIP [Concomitant]
     Indication: RESTLESS LEGS SYNDROME
     Dosage: UNK
  3. TOVIAZ [Suspect]
     Indication: HYPERTONIC BLADDER
     Dosage: 4 MG, 1X/DAY
     Route: 048
     Dates: start: 20110901
  4. DITROPAN [Concomitant]
     Indication: HYPERTONIC BLADDER
     Dosage: UNK
  5. PEPCID AC [Concomitant]
     Indication: DYSPEPSIA
     Dosage: UNK
  6. VESICARE [Concomitant]
     Indication: HYPERTONIC BLADDER
     Dosage: 10 MG, UNK
  7. ENABLEX [Concomitant]
     Indication: HYPERTONIC BLADDER
     Dosage: 15 MG, UNK

REACTIONS (5)
  - DRUG INEFFECTIVE [None]
  - DRUG TOLERANCE [None]
  - DRY MOUTH [None]
  - FEELING ABNORMAL [None]
  - URGE INCONTINENCE [None]
